FAERS Safety Report 4446128-1 (Version None)
Quarter: 2004Q3

REPORT INFORMATION
  Report Type: 
  Country: None (occurrence: None)
  Receive Date: 20040907
  Receipt Date: 20040901
  Transmission Date: 20050211
  Serious: Yes (Life-Threatening)
  Sender: FDA-Public Use
  Company Number: CZ-ROCHE-379375

PATIENT
  Age: 11 Year
  Sex: Male

DRUGS (1)
  1. RIVOTRIL [Suspect]
     Indication: EPILEPSY
     Route: 048
     Dates: start: 20040217, end: 20040503

REACTIONS (2)
  - CIRCULATORY COLLAPSE [None]
  - SYNCOPE [None]
